FAERS Safety Report 10525090 (Version 10)
Quarter: 2017Q1

REPORT INFORMATION
  Report Type: Spontaneous
  Country: US (occurrence: US)
  Receive Date: 20141017
  Receipt Date: 20170214
  Transmission Date: 20170428
  Serious: No
  Sender: FDA-Public Use
  Company Number: US-PFIZER INC-2014282185

PATIENT
  Age: 68 Year
  Sex: Male
  Weight: 75 kg

DRUGS (4)
  1. SUTENT [Suspect]
     Active Substance: SUNITINIB MALATE
     Indication: EXTRASKELETAL MYXOID CHONDROSARCOMA
     Dosage: 37.5 MG, DAILY, CONTINUOUSLY (AT NOON WITH FOOD)
     Route: 048
     Dates: start: 20140901
  2. AMLODIPINE BESYLATE. [Concomitant]
     Active Substance: AMLODIPINE BESYLATE
     Indication: HYPERTENSION
     Dosage: 5 MG, 1X/DAY
  3. SUTENT [Suspect]
     Active Substance: SUNITINIB MALATE
     Dosage: 12.5 MG, 3X/DAY
     Route: 048
     Dates: start: 201612
  4. METFORMIN [Concomitant]
     Active Substance: METFORMIN HYDROCHLORIDE
     Indication: DIABETES MELLITUS
     Dosage: 850 MG, 2X/DAY

REACTIONS (15)
  - Skin exfoliation [Unknown]
  - Dyspepsia [Not Recovered/Not Resolved]
  - Product use issue [Unknown]
  - Increased tendency to bruise [Unknown]
  - Nausea [Recovered/Resolved]
  - Abdominal discomfort [Recovered/Resolved]
  - Dyspnoea exertional [Not Recovered/Not Resolved]
  - Stomatitis [Recovering/Resolving]
  - Palmar-plantar erythrodysaesthesia syndrome [Recovered/Resolved]
  - Abdominal distension [Not Recovered/Not Resolved]
  - Flatulence [Not Recovered/Not Resolved]
  - Diarrhoea [Not Recovered/Not Resolved]
  - Glossodynia [Not Recovered/Not Resolved]
  - Dry skin [Unknown]
  - Neoplasm progression [Not Recovered/Not Resolved]

NARRATIVE: CASE EVENT DATE: 201409
